FAERS Safety Report 10876916 (Version 3)
Quarter: 2015Q3

REPORT INFORMATION
  Report Type: Report from Study
  Country: US (occurrence: US)
  Receive Date: 20150302
  Receipt Date: 20150721
  Transmission Date: 20151125
  Serious: Yes (Other)
  Sender: FDA-Public Use
  Company Number: US-BEH-2015049121

PATIENT
  Sex: Male

DRUGS (2)
  1. RIASTAP [Suspect]
     Active Substance: FIBRINOGEN HUMAN
     Dosage: START DATE OCT-2012, EVERY TUESDAY
  2. RIASTAP [Suspect]
     Active Substance: FIBRINOGEN HUMAN
     Indication: HAEMORRHAGE PROPHYLAXIS
     Dosage: START DATE OCT-2012, EVERY FRIDAY

REACTIONS (3)
  - Amnesia [Unknown]
  - Mental impairment [Unknown]
  - Cerebral haemorrhage [Unknown]
